FAERS Safety Report 15315529 (Version 1)
Quarter: 2018Q3

REPORT INFORMATION
  Report Type: Spontaneous
  Country: US (occurrence: US)
  Receive Date: 20180815
  Receipt Date: 20180815
  Transmission Date: 20181010
  Serious: Yes (Other)
  Sender: FDA-Public Use
  Company Number: None

PATIENT
  Age: 64 Year
  Sex: Male
  Weight: 74.25 kg

DRUGS (11)
  1. COENZYME Q10 [Concomitant]
     Active Substance: UBIDECARENONE
  2. CELECOXIB. [Concomitant]
     Active Substance: CELECOXIB
  3. AZELASTINE HCL NASAL SOLUTION [Suspect]
     Active Substance: AZELASTINE HYDROCHLORIDE
     Indication: HYPERSENSITIVITY
     Dosage: ?          QUANTITY:1 SPRAY(S);?
     Route: 055
     Dates: start: 20180802, end: 20180805
  4. AZELASTINE HCL NASAL SOLUTION [Suspect]
     Active Substance: AZELASTINE HYDROCHLORIDE
     Indication: HEADACHE
     Dosage: ?          QUANTITY:1 SPRAY(S);?
     Route: 055
     Dates: start: 20180802, end: 20180805
  5. GABAPENTIN. [Concomitant]
     Active Substance: GABAPENTIN
  6. OXYCODONE [Concomitant]
     Active Substance: OXYCODONE
  7. TIZANIDINE. [Concomitant]
     Active Substance: TIZANIDINE
  8. SENNA LAXATIVE [Concomitant]
     Active Substance: SENNOSIDES
  9. OMEPRAZOLE. [Concomitant]
     Active Substance: OMEPRAZOLE
  10. VITAMIN D2 [Concomitant]
     Active Substance: ERGOCALCIFEROL
  11. ATORVASTATIN [Concomitant]
     Active Substance: ATORVASTATIN

REACTIONS (9)
  - Throat irritation [None]
  - Oral discomfort [None]
  - Ageusia [None]
  - Urinary tract infection [None]
  - Pyrexia [None]
  - Back pain [None]
  - Dysuria [None]
  - Chills [None]
  - Pain [None]

NARRATIVE: CASE EVENT DATE: 20180804
